FAERS Safety Report 4712282-7 (Version None)
Quarter: 2005Q3

REPORT INFORMATION
  Report Type: 
  Country: None (occurrence: None)
  Receive Date: 20050712
  Receipt Date: 20050701
  Transmission Date: 20060218
  Serious: Yes (Hospitalization)
  Sender: FDA-Public Use
  Company Number: US-BRISTOL-MYERS SQUIBB COMPANY-13024138

PATIENT
  Age: 68 Year
  Sex: Male

DRUGS (5)
  1. PACLITAXEL [Suspect]
     Indication: NON-SMALL CELL LUNG CANCER
     Route: 042
     Dates: start: 20020612, end: 20020703
  2. CARBOPLATIN [Suspect]
     Indication: NON-SMALL CELL LUNG CANCER
     Route: 042
     Dates: start: 20020612, end: 20020703
  3. ATORVASTATIN CALCIUM [Concomitant]
  4. ASPIRIN [Concomitant]
     Dates: end: 20020605
  5. IBUPROFEN [Concomitant]

REACTIONS (2)
  - ATRIAL FLUTTER [None]
  - SUPRAVENTRICULAR TACHYCARDIA [None]
